FAERS Safety Report 5116613-8 (Version None)
Quarter: 2006Q3

REPORT INFORMATION
  Report Type: 
  Country: None (occurrence: None)
  Receive Date: 20060928
  Receipt Date: 20060908
  Transmission Date: 20061208
  Serious: Yes (Hospitalization)
  Sender: FDA-Public Use
  Company Number: PHHO2006JP15159

PATIENT
  Age: 78 Year
  Sex: Female

DRUGS (9)
  1. LOCHOL [Suspect]
     Indication: HYPERCHOLESTEROLAEMIA
     Dosage: 20 MG, QD
     Route: 048
     Dates: start: 20011215, end: 20060105
  2. ASPARA [Concomitant]
     Indication: HYPERTENSION
     Dates: start: 19900528, end: 20050630
  3. IBURONOL [Concomitant]
     Indication: CEREBRAL INFARCTION
  4. BAYCARON [Concomitant]
     Indication: HYPERTENSION
     Dates: start: 19900528, end: 20050630
  5. ALOSENN [Concomitant]
     Indication: CONSTIPATION
     Dates: start: 19991001, end: 20040325
  6. BENFOTIAMINE [Concomitant]
     Indication: NEURALGIA
  7. LANIRAPID [Concomitant]
     Indication: ATRIAL FIBRILLATION
  8. ASPIRIN [Concomitant]
     Indication: ATRIAL FIBRILLATION
  9. BLOPRESS [Concomitant]
     Indication: HYPERTENSION

REACTIONS (1)
  - DEMENTIA [None]
